FAERS Safety Report 13581477 (Version 1)
Quarter: 2017Q2

REPORT INFORMATION
  Report Type: Spontaneous
  Country: US (occurrence: US)
  Receive Date: 20170525
  Receipt Date: 20170525
  Transmission Date: 20170830
  Serious: Yes (Hospitalization, Other)
  Sender: FDA-Public Use
  Company Number: US-ZYDUS-015236

PATIENT
  Age: 35 Year
  Sex: Male

DRUGS (5)
  1. AZATHIOPRINE. [Suspect]
     Active Substance: AZATHIOPRINE
     Indication: PRODUCT USED FOR UNKNOWN INDICATION
     Route: 065
  2. PREDNISONE. [Suspect]
     Active Substance: PREDNISONE
     Indication: PRODUCT USED FOR UNKNOWN INDICATION
     Route: 065
  3. LEVOFLOXACIN. [Concomitant]
     Active Substance: LEVOFLOXACIN
     Indication: INFLUENZA LIKE ILLNESS
     Route: 065
  4. PAZOPANIB [Suspect]
     Active Substance: PAZOPANIB
     Indication: PRODUCT USED FOR UNKNOWN INDICATION
     Route: 065
  5. HYDROXYCHLOROQUINE [Suspect]
     Active Substance: HYDROXYCHLOROQUINE
     Indication: PRODUCT USED FOR UNKNOWN INDICATION
     Route: 065

REACTIONS (46)
  - Neck pain [Recovering/Resolving]
  - Blood albumin decreased [Recovering/Resolving]
  - Thrombocytopenia [Recovering/Resolving]
  - Headache [Recovering/Resolving]
  - Multi-organ disorder [Recovering/Resolving]
  - Acute kidney injury [Recovering/Resolving]
  - Blood lactic acid increased [Recovering/Resolving]
  - Aspartate aminotransferase increased [Recovering/Resolving]
  - Blood creatinine increased [Recovering/Resolving]
  - Histiocytosis haematophagic [Recovering/Resolving]
  - Oropharyngeal pain [Recovering/Resolving]
  - Blood fibrinogen decreased [Recovering/Resolving]
  - Rhabdomyolysis [Recovering/Resolving]
  - Pyrexia [Recovered/Resolved]
  - Nausea [Recovering/Resolving]
  - Vomiting [Recovering/Resolving]
  - Liver function test abnormal [Recovering/Resolving]
  - Mental status changes [Recovered/Resolved]
  - Alanine aminotransferase increased [Recovering/Resolving]
  - Chills [Recovered/Resolved]
  - Influenza like illness [Recovering/Resolving]
  - Urinary retention [Recovering/Resolving]
  - Transferrin decreased [Recovering/Resolving]
  - Interleukin-2 receptor increased [Recovering/Resolving]
  - Coagulopathy [Recovering/Resolving]
  - Diarrhoea [Recovering/Resolving]
  - Asthenia [Recovering/Resolving]
  - Tachycardia [Recovering/Resolving]
  - Hypotension [Recovering/Resolving]
  - Procalcitonin increased [Recovering/Resolving]
  - Blood osmolarity decreased [Recovering/Resolving]
  - Agitation [Recovered/Resolved]
  - Hyponatraemia [Recovering/Resolving]
  - Lipase increased [Recovering/Resolving]
  - Abdominal rigidity [Recovering/Resolving]
  - Blood lactate dehydrogenase increased [Recovering/Resolving]
  - Blood triglycerides increased [Recovering/Resolving]
  - C-reactive protein increased [Recovering/Resolving]
  - Hepatosplenomegaly [Recovering/Resolving]
  - International normalised ratio increased [Recovering/Resolving]
  - Activated partial thromboplastin time prolonged [Recovering/Resolving]
  - Platelet count decreased [Recovering/Resolving]
  - Dyspnoea [Recovering/Resolving]
  - Pancytopenia [Recovering/Resolving]
  - Iron binding capacity total decreased [Recovering/Resolving]
  - Serum ferritin increased [Recovering/Resolving]
